FAERS Safety Report 6937807-2 (Version None)
Quarter: 2010Q3

REPORT INFORMATION
  Report Type: 
  Country: None (occurrence: None)
  Receive Date: 20100823
  Receipt Date: 20100823
  Transmission Date: 20110219
  Serious: Yes (Hospitalization)
  Sender: FDA-Public Use
  Company Number: None

PATIENT
  Age: 69 Year
  Sex: Female
  Weight: 55.8 kg

DRUGS (16)
  1. BEVACIZUMAB (OFF STUDY MAINTENANCE) [Suspect]
     Indication: NON-SMALL CELL LUNG CANCER
     Dosage: 837MG, IV DAY 1, Q3 WKS
     Route: 042
     Dates: start: 20100818
  2. BUDESONIDE [Concomitant]
  3. POTASSIUM CHLORIDE [Concomitant]
  4. VANLAFAXINE [Concomitant]
  5. ALBUTEROL [Concomitant]
  6. WARFARIN SODIUM [Concomitant]
  7. OXYCODONE HCL [Concomitant]
  8. DIGOXIN [Concomitant]
  9. PROCHLORPERAZINE [Concomitant]
  10. LISINOPRIL [Concomitant]
  11. FOLIC ACID [Concomitant]
  12. VIT D [Concomitant]
  13. DIPHENHYDRAMINE [Concomitant]
  14. PROPRANOLOL [Concomitant]
  15. HYDROCHLOROTHIAZIDE [Concomitant]
  16. MULTI-VITAMIN [Concomitant]

REACTIONS (3)
  - DEEP VEIN THROMBOSIS [None]
  - LUNG INFECTION [None]
  - PNEUMONIA [None]
